FAERS Safety Report 15121915 (Version 2)
Quarter: 2018Q4

REPORT INFORMATION
  Report Type: Spontaneous
  Country: US (occurrence: US)
  Receive Date: 20180709
  Receipt Date: 20181211
  Transmission Date: 20190204
  Serious: Yes (Hospitalization, Other)
  Sender: FDA-Public Use
  Company Number: US-OTSUKA-2018_016050

PATIENT
  Age: 30 Year
  Sex: Male

DRUGS (7)
  1. CYMBALTA [Concomitant]
     Active Substance: DULOXETINE HYDROCHLORIDE
     Indication: DEPRESSION
     Dosage: 60 MG, QD
     Route: 065
  2. LAMICTAL [Concomitant]
     Active Substance: LAMOTRIGINE
     Indication: AFFECTIVE DISORDER
     Dosage: UNK
     Route: 065
  3. DEPAKOTE [Concomitant]
     Active Substance: DIVALPROEX SODIUM
     Indication: PRODUCT USED FOR UNKNOWN INDICATION
     Dosage: 500 MG, BID
     Route: 065
  4. ZOLOFT [Concomitant]
     Active Substance: SERTRALINE HYDROCHLORIDE
     Indication: PRODUCT USED FOR UNKNOWN INDICATION
     Dosage: 100 MG, QM (AS NEEDED )
     Route: 065
  5. ABILIFY [Suspect]
     Active Substance: ARIPIPRAZOLE
     Indication: MAJOR DEPRESSION
     Dosage: 2.5 MG, QD
     Route: 065
     Dates: start: 20091203, end: 20140324
  6. ABILIFY [Suspect]
     Active Substance: ARIPIPRAZOLE
     Indication: ANXIETY
     Dosage: 5 MG, UNK (HALF AT NIGHT)
     Route: 065
  7. PRAZOSIN. [Concomitant]
     Active Substance: PRAZOSIN
     Indication: PRODUCT USED FOR UNKNOWN INDICATION
     Dosage: 1 MG, BID
     Route: 065

REACTIONS (29)
  - Obsessive-compulsive disorder [Recovered/Resolved]
  - Haematocrit decreased [Unknown]
  - Mental disorder [Unknown]
  - Sexual dysfunction [Recovered/Resolved]
  - Albumin globulin ratio increased [Unknown]
  - Gambling disorder [Recovered/Resolved]
  - Mood swings [Unknown]
  - Blood cholesterol increased [Unknown]
  - Depression [Unknown]
  - Economic problem [Unknown]
  - Suicidal ideation [Unknown]
  - Compulsive sexual behaviour [Recovered/Resolved]
  - Depressed mood [Unknown]
  - Feeling abnormal [Unknown]
  - Blood glucose increased [Unknown]
  - Anxiety [Unknown]
  - Insomnia [Unknown]
  - Product use in unapproved indication [Unknown]
  - Substance dependence [Unknown]
  - Drug dependence [Unknown]
  - Irritability [Unknown]
  - Abnormal behaviour [Unknown]
  - Persistent depressive disorder [Unknown]
  - Low density lipoprotein increased [Unknown]
  - Blood bilirubin increased [Unknown]
  - Compulsive shopping [Recovered/Resolved]
  - Loss of employment [Unknown]
  - Ammonia increased [Unknown]
  - Theft [Recovered/Resolved]

NARRATIVE: CASE EVENT DATE: 20091203
